FAERS Safety Report 15374940 (Version 1)
Quarter: 2018Q3

REPORT INFORMATION
  Report Type: Spontaneous
  Country: JP (occurrence: JP)
  Receive Date: 20180912
  Receipt Date: 20180912
  Transmission Date: 20181010
  Serious: Yes (Hospitalization)
  Sender: FDA-Public Use
  Company Number: JP-PFIZER INC-2018359146

PATIENT
  Age: 3 Decade
  Sex: Female

DRUGS (1)
  1. JZOLOFT [Suspect]
     Active Substance: SERTRALINE HYDROCHLORIDE
     Indication: DEPRESSION
     Dosage: 50 MG, DAILY

REACTIONS (3)
  - Affect lability [Recovering/Resolving]
  - Abnormal behaviour [Recovering/Resolving]
  - Irritability [Recovering/Resolving]
